FAERS Safety Report 14830948 (Version 3)
Quarter: 2018Q3

REPORT INFORMATION
  Report Type: Report from Study
  Country: DE (occurrence: DE)
  Receive Date: 20180430
  Receipt Date: 20180821
  Transmission Date: 20181010
  Serious: Yes (Hospitalization, Other)
  Sender: FDA-Public Use
  Company Number: PHHY2018DE069979

PATIENT
  Age: 68 Year
  Sex: Female
  Weight: 78 kg

DRUGS (10)
  1. METOHEXAL [Suspect]
     Active Substance: METOPROLOL SUCCINATE
     Indication: CARDIAC FAILURE CHRONIC
     Dosage: 95 MG, QD(2X1)
     Route: 065
  2. METOHEXAL [Suspect]
     Active Substance: METOPROLOL SUCCINATE
     Indication: HYPERTENSION
  3. METOHEXAL [Suspect]
     Active Substance: METOPROLOL SUCCINATE
     Indication: MITRAL VALVE DISEASE
  4. PREDNISOLONE. [Concomitant]
     Active Substance: PREDNISOLONE
     Indication: PRODUCT USED FOR UNKNOWN INDICATION
     Dosage: 5 MG, QD
     Route: 048
     Dates: start: 201703
  5. TORASEMIDE [Concomitant]
     Active Substance: TORSEMIDE
     Indication: PRODUCT USED FOR UNKNOWN INDICATION
     Dosage: 10 MG, QD
     Route: 048
     Dates: start: 2015
  6. METOHEXAL [Suspect]
     Active Substance: METOPROLOL SUCCINATE
     Indication: ATRIAL FIBRILLATION
  7. ALLOPURINOL ^HEUMANN^ [Concomitant]
     Indication: BLOOD URIC ACID ABNORMAL
     Dosage: 200 MG, QD
     Route: 048
     Dates: start: 201710
  8. LERCANIDIPINE [Concomitant]
     Active Substance: LERCANIDIPINE
     Indication: CARDIAC DISORDER
     Dosage: 1 MG, QD
     Route: 048
     Dates: start: 201612
  9. L?THYROXINE [Concomitant]
     Active Substance: LEVOTHYROXINE
     Indication: THYROID DISORDER
     Dosage: 0.00005 (NO UNITS), QD
     Route: 048
     Dates: start: 1978
  10. PANTOPRAZOLE [Concomitant]
     Active Substance: PANTOPRAZOLE
     Indication: ABDOMINAL DISCOMFORT
     Dosage: 40 MG, QD
     Route: 048
     Dates: start: 2000

REACTIONS (14)
  - C-reactive protein increased [Recovered/Resolved]
  - Hypertension [Not Recovered/Not Resolved]
  - Mitral valve incompetence [Recovered/Resolved]
  - Cataract [Not Recovered/Not Resolved]
  - Fibromyalgia [Recovering/Resolving]
  - Arthralgia [Recovering/Resolving]
  - Cough [Recovered/Resolved]
  - Rheumatic disorder [Recovering/Resolving]
  - Mobility decreased [Unknown]
  - Infection [Recovered/Resolved]
  - Angina pectoris [Recovered/Resolved]
  - Chronic kidney disease [Recovering/Resolving]
  - Mitral valve disease [Recovered/Resolved]
  - Renal failure [Recovering/Resolving]

NARRATIVE: CASE EVENT DATE: 1998
